FAERS Safety Report 23716556 (Version 3)
Quarter: 2024Q2

REPORT INFORMATION
  Report Type: Report from Study
  Country: US (occurrence: US)
  Receive Date: 20240408
  Receipt Date: 20240611
  Transmission Date: 20240716
  Serious: Yes (Hospitalization)
  Sender: FDA-Public Use
  Company Number: US-JNJFOC-20240401978

PATIENT
  Age: 50 Year
  Sex: Female

DRUGS (3)
  1. SPRAVATO [Suspect]
     Active Substance: ESKETAMINE
     Indication: Depression
     Dosage: ^56 MG, 15 TOTAL DOSES^
     Dates: start: 20231102, end: 20240109
  2. SPRAVATO [Suspect]
     Active Substance: ESKETAMINE
     Indication: Major depression
     Dosage: ^84 MG, 10 TOTAL DOSES^
     Dates: start: 20240117, end: 20240320
  3. SPRAVATO [Suspect]
     Active Substance: ESKETAMINE
     Dosage: ^84 MG, 1 TOTAL DOSE^
     Dates: start: 20240327, end: 20240327

REACTIONS (3)
  - Substance abuse [Unknown]
  - Blood pressure decreased [Unknown]
  - Somnolence [Unknown]

NARRATIVE: CASE EVENT DATE: 20240327
